FAERS Safety Report 23976726 (Version 2)
Quarter: 2024Q3

REPORT INFORMATION
  Report Type: Spontaneous
  Country: US (occurrence: US)
  Receive Date: 20240614
  Receipt Date: 20240708
  Transmission Date: 20241016
  Serious: No
  Sender: CALLIDITAS THERAPEUTICS
  Company Number: US-Calliditas-2024CAL00938

PATIENT
  Age: 45 Year
  Sex: Male
  Weight: 86.4 kg

DRUGS (1)
  1. TARPEYO [Suspect]
     Active Substance: BUDESONIDE
     Indication: IgA nephropathy
     Route: 048
     Dates: start: 20240314

REACTIONS (7)
  - Somnolence [Unknown]
  - Flatulence [Unknown]
  - Back pain [Unknown]
  - Neck pain [Unknown]
  - Inappropriate schedule of product administration [Unknown]
  - Movement disorder [Unknown]
  - Infection susceptibility increased [Unknown]
